FAERS Safety Report 5050000-6 (Version None)
Quarter: 2006Q2

REPORT INFORMATION
  Report Type: 
  Country: None (occurrence: None)
  Receive Date: 20060614
  Receipt Date: 20060227
  Transmission Date: 20061013
  Serious: Yes (Hospitalization)
  Sender: FDA-Public Use
  Company Number: 438493

PATIENT
  Age: 68 Year
  Sex: Female
  Weight: 41.3 kg

DRUGS (5)
  1. BONIVA [Suspect]
     Indication: OSTEOPOROSIS
     Dosage: 150 MG 1 PER MONTH ORAL
     Route: 048
     Dates: start: 20050615, end: 20051215
  2. COREG [Concomitant]
  3. SPIRONOLACTONE [Concomitant]
  4. BLOOD PRESSURE MEDICATION NOS (ANTIHYPERTENSIVE NOS) [Concomitant]
  5. ASPIRIN [Concomitant]

REACTIONS (3)
  - ABDOMINAL PAIN [None]
  - ARTHRALGIA [None]
  - BRONCHITIS [None]
